FAERS Safety Report 9540851 (Version 3)
Quarter: 2013Q4

REPORT INFORMATION
  Report Type: Spontaneous
  Country: US (occurrence: US)
  Receive Date: 20130920
  Receipt Date: 20131001
  Transmission Date: 20140711
  Serious: Yes (Hospitalization, Other)
  Sender: FDA-Public Use
  Company Number: US-BAXTER-2013BAX036462

PATIENT
  Sex: Female

DRUGS (2)
  1. DIANEAL LOW CALCIUM [Suspect]
     Indication: PERITONEAL DIALYSIS
     Dosage: 2 BAGS
     Route: 033
     Dates: start: 201206
  2. DIANEAL LOW CALCIUM [Suspect]
     Indication: PERITONEAL DIALYSIS
     Route: 033
     Dates: start: 201206

REACTIONS (9)
  - Viral infection [Unknown]
  - Systemic lupus erythematosus [Unknown]
  - Azotaemia [Unknown]
  - Blood potassium decreased [Unknown]
  - Peritoneal dialysis complication [Unknown]
  - Dyspnoea [Unknown]
  - Nausea [Unknown]
  - Procedural pain [Unknown]
  - Abdominal distension [Unknown]
